FAERS Safety Report 12594585 (Version 2)
Quarter: 2017Q3

REPORT INFORMATION
  Report Type: Spontaneous
  Country: US (occurrence: US)
  Receive Date: 20160726
  Receipt Date: 20170725
  Transmission Date: 20171127
  Serious: Yes (Other)
  Sender: FDA-Public Use
  Company Number: US-UNITED THERAPEUTICS-UNT-2016-001616

PATIENT
  Sex: Male
  Weight: 75.74 kg

DRUGS (11)
  1. REMODULIN [Suspect]
     Active Substance: TREPROSTINIL
     Indication: PULMONARY HYPERTENSION
  2. LETAIRIS [Suspect]
     Active Substance: AMBRISENTAN
     Indication: PRODUCT USED FOR UNKNOWN INDICATION
     Dosage: 10 MG, QD
     Route: 048
     Dates: start: 20150717
  3. OXYGEN. [Concomitant]
     Active Substance: OXYGEN
     Indication: PRODUCT USED FOR UNKNOWN INDICATION
  4. ACETAMINOPHEN AND CODEINE [Concomitant]
     Active Substance: ACETAMINOPHEN\CODEINE PHOSPHATE
     Indication: PRODUCT USED FOR UNKNOWN INDICATION
     Dosage: 1 TAB, Q4H PRN
     Route: 048
  5. AMIODARONE [Concomitant]
     Active Substance: AMIODARONE
     Indication: PRODUCT USED FOR UNKNOWN INDICATION
     Dosage: 200 MG, QD
     Route: 048
  6. PANTOPRAZOLE [Concomitant]
     Active Substance: PANTOPRAZOLE
     Indication: PRODUCT USED FOR UNKNOWN INDICATION
     Dosage: 40 MG, BID, AFTER COMPLETING BREAKFAST/DINNER
     Route: 048
  7. POTASSIUM CHLORIDE. [Concomitant]
     Active Substance: POTASSIUM CHLORIDE
     Indication: PRODUCT USED FOR UNKNOWN INDICATION
     Dosage: 20 MEQ, QD
     Route: 048
  8. REMODULIN [Suspect]
     Active Substance: TREPROSTINIL
     Indication: PULMONARY ARTERIAL HYPERTENSION
     Dosage: 0.018 ?G/KG, CONTINUING
     Route: 058
     Dates: start: 20150909
  9. REVATIO [Concomitant]
     Active Substance: SILDENAFIL CITRATE
     Indication: PRODUCT USED FOR UNKNOWN INDICATION
     Dosage: 20 MG, TID
     Route: 048
  10. BUMEX [Concomitant]
     Active Substance: BUMETANIDE
     Indication: PRODUCT USED FOR UNKNOWN INDICATION
     Dosage: 6 MG, BID
     Route: 048
  11. REVATIO [Concomitant]
     Active Substance: SILDENAFIL CITRATE
     Dosage: 10 MG, QD
     Route: 048

REACTIONS (2)
  - Right ventricular failure [Unknown]
  - Infusion site pain [Unknown]

NARRATIVE: CASE EVENT DATE: 2016
